FAERS Safety Report 17700322 (Version 1)
Quarter: 2020Q2

REPORT INFORMATION
  Report Type: Report from Study
  Country: US (occurrence: US)
  Receive Date: 20200423
  Receipt Date: 20200423
  Transmission Date: 20200714
  Serious: No
  Sender: FDA-Public Use
  Company Number: NVSC2020US108838

PATIENT
  Age: 35 Year
  Sex: Female

DRUGS (2)
  1. XIIDRA [Suspect]
     Active Substance: LIFITEGRAST
     Indication: GLAUCOMA
  2. XIIDRA [Suspect]
     Active Substance: LIFITEGRAST
     Indication: DRY EYE
     Dosage: 1 GTT, BID
     Route: 047

REACTIONS (4)
  - Product dose omission [Unknown]
  - Drug ineffective [Unknown]
  - Product administration error [Unknown]
  - Product prescribing error [Unknown]
